FAERS Safety Report 7425417-2 (Version None)
Quarter: 2011Q2

REPORT INFORMATION
  Report Type: 
  Country: None (occurrence: None)
  Receive Date: 20110415
  Receipt Date: 20110415
  Transmission Date: 20111010
  Serious: Yes (Other)
  Sender: FDA-Public Use
  Company Number: None

PATIENT
  Age: 71 Year
  Sex: Female
  Weight: 46.2669 kg

DRUGS (4)
  1. ACYCLOVIR [Concomitant]
  2. ASPIRIN [Concomitant]
  3. ALENDRONATE SODIUM [Suspect]
     Indication: OSTEOPOROSIS
     Dosage: 70 MG WEEKLY PO
     Route: 048
     Dates: start: 20101211, end: 20110115
  4. MULTI-VITAMINS [Concomitant]

REACTIONS (4)
  - HALLUCINATION [None]
  - ABNORMAL DREAMS [None]
  - MACULAR SCAR [None]
  - INSOMNIA [None]
